FAERS Safety Report 21132209 (Version 2)
Quarter: 2022Q3

REPORT INFORMATION
  Report Type: Spontaneous
  Country: IL (occurrence: IL)
  Receive Date: 20220726
  Receipt Date: 20220831
  Transmission Date: 20221027
  Serious: Yes (Hospitalization)
  Sender: FDA-Public Use
  Company Number: IL-PFIZER INC-PV202200027707

PATIENT
  Age: 12 Year
  Sex: Female

DRUGS (2)
  1. GENOTROPIN [Suspect]
     Active Substance: SOMATROPIN
     Indication: Short stature
     Dosage: UNK
     Dates: start: 201909
  2. NORDITROPIN [Suspect]
     Active Substance: SOMATROPIN
     Indication: Short stature
     Dosage: UNK

REACTIONS (1)
  - Psychotic disorder [Not Recovered/Not Resolved]

NARRATIVE: CASE EVENT DATE: 20220301
